FAERS Safety Report 21469927 (Version 4)
Quarter: 2023Q1

REPORT INFORMATION
  Report Type: Report from Study
  Country: US (occurrence: US)
  Receive Date: 20221018
  Receipt Date: 20230315
  Transmission Date: 20230417
  Serious: Yes (Hospitalization, Other)
  Sender: FDA-Public Use
  Company Number: US-NOVARTISPH-NVSC2022US233215

PATIENT
  Age: 64 Year
  Sex: Male

DRUGS (1)
  1. ENTRESTO [Suspect]
     Active Substance: SACUBITRIL\VALSARTAN
     Indication: Product used for unknown indication
     Dosage: 1 DOSAGE FORM, BID
     Route: 048

REACTIONS (6)
  - COVID-19 [Recovering/Resolving]
  - Dyspnoea [Unknown]
  - Asthenia [Unknown]
  - COVID-19 pneumonia [Recovering/Resolving]
  - Sleep disorder [Unknown]
  - Cough [Unknown]

NARRATIVE: CASE EVENT DATE: 20220901
